FAERS Safety Report 9604406 (Version 1)
Quarter: 2013Q4

REPORT INFORMATION
  Report Type: Report from Study
  Country: AR (occurrence: AR)
  Receive Date: 20131008
  Receipt Date: 20131008
  Transmission Date: 20140711
  Serious: Yes (Other)
  Sender: FDA-Public Use
  Company Number: AR-ROCHE-1285579

PATIENT
  Sex: Female

DRUGS (1)
  1. LUCENTIS [Suspect]
     Indication: VISION BLURRED
     Route: 050
     Dates: start: 201210

REACTIONS (2)
  - Pyrexia [Recovering/Resolving]
  - Ocular hypertension [Recovering/Resolving]
